FAERS Safety Report 8223768-5 (Version None)
Quarter: 2012Q1

REPORT INFORMATION
  Report Type: 
  Country: None (occurrence: None)
  Receive Date: 20120321
  Receipt Date: 20120310
  Transmission Date: 20120608
  Serious: Yes (Other)
  Sender: FDA-Public Use
  Company Number: US-SANOFI-AVENTIS-2012SA015965

PATIENT
  Age: 77 Year
  Sex: Female

DRUGS (2)
  1. LANTUS [Suspect]
     Dosage: 26 UNITS IN THE AM AND 16 UNITS IN THE PM
     Route: 058
     Dates: start: 20110101
  2. SOLOSTAR [Suspect]
     Dates: start: 20110101

REACTIONS (4)
  - TENDON RUPTURE [None]
  - NEUROPATHY PERIPHERAL [None]
  - SKIN ULCER [None]
  - BLOOD GLUCOSE INCREASED [None]
